FAERS Safety Report 4461172-6 (Version None)
Quarter: 2004Q3

REPORT INFORMATION
  Report Type: 
  Country: None (occurrence: None)
  Receive Date: 20040928
  Receipt Date: 20040917
  Transmission Date: 20050211
  Serious: Yes (Hospitalization)
  Sender: FDA-Public Use
  Company Number: PT-JNJFOC-20040903191

PATIENT
  Sex: Male

DRUGS (1)
  1. RISPERDAL [Suspect]
     Route: 049

REACTIONS (4)
  - CONDITION AGGRAVATED [None]
  - INCONTINENCE [None]
  - INFECTION [None]
  - NEUROLEPTIC MALIGNANT SYNDROME [None]
